FAERS Safety Report 15231778 (Version 7)
Quarter: 2020Q3

REPORT INFORMATION
  Report Type: Report from Study
  Country: ES (occurrence: ES)
  Receive Date: 20180802
  Receipt Date: 20200828
  Transmission Date: 20201102
  Serious: Yes (Hospitalization)
  Sender: FDA-Public Use
  Company Number: ES-ROCHE-2158740

PATIENT
  Age: 68 Year
  Sex: Female
  Weight: 46 kg

DRUGS (12)
  1. PARACETAMOL [Concomitant]
     Active Substance: ACETAMINOPHEN
     Indication: PAIN
     Dosage: PRN (AS NEEDED)
     Route: 048
  2. FOLIDOCE [Concomitant]
     Active Substance: CYANOCOBALAMIN\FOLIC ACID
     Indication: PREMEDICATION
     Dosage: QD (EVERY DAY)
     Route: 048
     Dates: start: 20180619, end: 20180709
  3. LACTOBACILLUS ACIDOPHILUS [Concomitant]
     Active Substance: LACTOBACILLUS ACIDOPHILUS
     Route: 048
     Dates: start: 20180801, end: 20180802
  4. PANTOPRAZOL [Concomitant]
     Active Substance: PANTOPRAZOLE SODIUM
     Indication: GASTROINTESTINAL DISORDER PROPHYLAXIS
     Route: 048
     Dates: start: 20180728
  5. ATEZOLIZUMAB. [Suspect]
     Active Substance: ATEZOLIZUMAB
     Indication: NON-SMALL CELL LUNG CANCER
     Dosage: MOST RECENT DOSE OF ATEZOLIZUMAB PRIOR TO SAES: 09/JUL/2018
     Route: 042
     Dates: start: 20180709
  6. FOLIDOCE [Concomitant]
     Active Substance: CYANOCOBALAMIN\FOLIC ACID
     Dosage: 400 OTHER
     Route: 048
     Dates: start: 20180806
  7. RED BLOOD CELLS [Concomitant]
     Active Substance: HUMAN RED BLOOD CELL
     Indication: ANAEMIA
     Dosage: TRANSFUSION
     Route: 042
     Dates: start: 20180721, end: 20180721
  8. SEPTRIN FORTE [Concomitant]
     Active Substance: SULFAMETHOXAZOLE\TRIMETHOPRIM
     Route: 048
     Dates: start: 20180806
  9. TARDYFERON [Concomitant]
     Active Substance: FERROUS SULFATE
     Indication: MICROCYTIC ANAEMIA
     Route: 048
     Dates: start: 20180629
  10. AMLODIPINE [Concomitant]
     Active Substance: AMLODIPINE BESYLATE
     Indication: HYPERTENSION
     Dosage: PRN (AS NEEDED)
     Route: 048
     Dates: start: 20180722
  11. BEMIPARINA SODICA [Concomitant]
     Route: 058
     Dates: start: 20180728, end: 20180802
  12. MYCOSTATIN [Concomitant]
     Active Substance: NYSTATIN
     Indication: ORAL CANDIDIASIS
     Route: 048
     Dates: start: 20180806, end: 20180816

REACTIONS (3)
  - Respiratory failure [Recovered/Resolved]
  - Urinary tract infection [Recovered/Resolved]
  - Noninfective encephalitis [Recovered/Resolved]

NARRATIVE: CASE EVENT DATE: 20180718
